FAERS Safety Report 4315747-5 (Version None)
Quarter: 2004Q1

REPORT INFORMATION
  Report Type: 
  Country: None (occurrence: None)
  Receive Date: 20040302
  Receipt Date: 20031117
  Transmission Date: 20041129
  Serious: Yes (Other)
  Sender: FDA-Public Use
  Company Number: IMM024449

PATIENT
  Sex: Female

DRUGS (5)
  1. ENBREL [Suspect]
     Indication: RHEUMATOID ARTHRITIS
     Dosage: 25 MG, TWICE WEEKLY, SC
     Route: 058
     Dates: end: 20001001
  2. METHOTREXATE [Concomitant]
  3. OXYCONTIN [Concomitant]
  4. ROFECOXIB [Concomitant]
  5. LANSOPRAZOLE [Concomitant]

REACTIONS (1)
  - PARAESTHESIA [None]
